FAERS Safety Report 9071133 (Version 2)
Quarter: 2013Q1

REPORT INFORMATION
  Report Type: Spontaneous
  Country: DE (occurrence: IT)
  Receive Date: 20130129
  Receipt Date: 20130327
  Transmission Date: 20140127
  Serious: Yes (Other)
  Sender: FDA-Public Use
  Company Number: JP-ASTRAZENECA-2013SE05683

PATIENT
  Sex: Female

DRUGS (2)
  1. BLOPRESS [Suspect]
     Indication: HYPERTENSION
     Route: 048
  2. BLOPRESS PLUS [Suspect]
     Indication: HYPERTENSION
     Dosage: 16 MG/ 12.5 MG ONCE DAILY IN THE MORNING
     Route: 048

REACTIONS (5)
  - Myocardial infarction [Unknown]
  - Cardiac failure [Unknown]
  - Blood pressure increased [Unknown]
  - Cardiac valve disease [Unknown]
  - Blood pressure fluctuation [Unknown]
